FAERS Safety Report 9351919 (Version 1)
Quarter: 2013Q2

REPORT INFORMATION
  Report Type: Spontaneous
  Country: FR (occurrence: FR)
  Receive Date: 20130617
  Receipt Date: 20130617
  Transmission Date: 20140414
  Serious: Yes (Other)
  Sender: FDA-Public Use
  Company Number: FR-GLAXOSMITHKLINE-B0898769A

PATIENT
  Age: 53 Year
  Sex: Male

DRUGS (6)
  1. REQUIP LP [Suspect]
     Indication: PARKINSON^S DISEASE
     Dosage: 20MG PER DAY
     Route: 048
     Dates: start: 200903, end: 201001
  2. STALEVO [Concomitant]
     Indication: PARKINSON^S DISEASE
     Dosage: 1UNIT FOUR TIMES PER DAY
     Route: 048
     Dates: start: 200903
  3. SINEMET [Concomitant]
     Indication: PARKINSON^S DISEASE
     Dosage: 1UNIT FOUR TIMES PER DAY
     Route: 048
     Dates: start: 200903
  4. NISISCO [Concomitant]
     Route: 065
  5. METFORMIN [Concomitant]
     Route: 065
  6. GLUCOR [Concomitant]
     Route: 065

REACTIONS (4)
  - Pathological gambling [Recovering/Resolving]
  - Hypersexuality [Recovering/Resolving]
  - Compulsive shopping [Recovering/Resolving]
  - Inappropriate schedule of drug administration [Unknown]
